FAERS Safety Report 7242556-X (Version None)
Quarter: 2011Q1

REPORT INFORMATION
  Report Type: 
  Country: None (occurrence: None)
  Receive Date: 20110114
  Receipt Date: 20110104
  Transmission Date: 20110831
  Serious: Yes (Other)
  Sender: FDA-Public Use
  Company Number: DSJ-2011-00273

PATIENT
  Sex: Female

DRUGS (4)
  1. SIMVASTATIN [Concomitant]
  2. DIOSMIN/HESPERIDIN (HESPERIDIN, DIOSMIN) (HESPERIDIN, DIOSMIN) [Concomitant]
  3. BENICAR HCT [Suspect]
     Indication: HYPERTENSION
     Dosage: 40/12.5MG (1 IN 1 D), PER ORAL
     Route: 048
     Dates: start: 20090922, end: 20101201
  4. CITALOPRAM HYDROBROMIDE [Concomitant]

REACTIONS (3)
  - MACULAR HOLE [None]
  - DRUG INEFFECTIVE [None]
  - MALIGNANT NEOPLASM OF EYE [None]
